FAERS Safety Report 7026563-8 (Version None)
Quarter: 2010Q4

REPORT INFORMATION
  Report Type: 
  Country: None (occurrence: None)
  Receive Date: 20101004
  Receipt Date: 20100923
  Transmission Date: 20110411
  Serious: Yes (Hospitalization)
  Sender: FDA-Public Use
  Company Number: SE-ASTRAZENECA-2010SE44865

PATIENT
  Age: 62 Year
  Sex: Male

DRUGS (4)
  1. ATACAND [Suspect]
     Indication: ESSENTIAL HYPERTENSION
     Route: 048
     Dates: end: 20100505
  2. NORMORIX [Suspect]
     Indication: ESSENTIAL HYPERTENSION
     Dosage: 2.5 MG/25 MG, 1DF, DAILY.
     Route: 048
     Dates: start: 20100429, end: 20100505
  3. FOLACIN [Concomitant]
  4. METHOTREXATE WYETH [Concomitant]

REACTIONS (2)
  - CONFUSIONAL STATE [None]
  - HYPONATRAEMIA [None]
